FAERS Safety Report 15243116 (Version 1)
Quarter: 2018Q3

REPORT INFORMATION
  Report Type: Spontaneous
  Country: ES (occurrence: ES)
  Receive Date: 20180806
  Receipt Date: 20180806
  Transmission Date: 20181010
  Serious: Yes (Hospitalization, Disabling, Other)
  Sender: FDA-Public Use
  Company Number: ES-AXELLIA-001831

PATIENT
  Age: 86 Year
  Sex: Male

DRUGS (8)
  1. OMEPRAZOLE. [Concomitant]
     Active Substance: OMEPRAZOLE
  2. BISOPROLOL [Concomitant]
     Active Substance: BISOPROLOL
  3. DAPTOMYCIN. [Suspect]
     Active Substance: DAPTOMYCIN
     Indication: INTERVERTEBRAL DISCITIS
  4. PREDNISONE. [Concomitant]
     Active Substance: PREDNISONE
  5. CEFEPIME [Concomitant]
     Active Substance: CEFEPIME HYDROCHLORIDE
     Indication: INTERVERTEBRAL DISCITIS
  6. LORMETAZEPAM [Concomitant]
     Active Substance: LORMETAZEPAM
  7. ACENOCOUMAROL [Concomitant]
     Active Substance: ACENOCOUMAROL
  8. FUROSEMIDE. [Concomitant]
     Active Substance: FUROSEMIDE

REACTIONS (4)
  - Uraemic encephalopathy [Unknown]
  - Rhabdomyolysis [Unknown]
  - Haemoptysis [Unknown]
  - Acute kidney injury [Unknown]
